FAERS Safety Report 21159975 (Version 1)
Quarter: 2022Q3

REPORT INFORMATION
  Report Type: Spontaneous
  Country: MA (occurrence: MA)
  Receive Date: 20220802
  Receipt Date: 20220802
  Transmission Date: 20221027
  Serious: Yes (Death, Hospitalization)
  Sender: FDA-Public Use
  Company Number: MA-STRIDES ARCOLAB LIMITED-2022SP009722

PATIENT
  Age: 56 Year

DRUGS (4)
  1. PREDNISOLONE [Suspect]
     Active Substance: PREDNISOLONE
     Indication: Castleman^s disease
     Dosage: UNK, CHOP CHEMOTHERAPY
     Route: 048
  2. DOXORUBICIN [Suspect]
     Active Substance: DOXORUBICIN
     Indication: Castleman^s disease
     Dosage: UNK.(CHOP CHEMOTHERAPY)
     Route: 065
  3. CYCLOPHOSPHAMIDE [Suspect]
     Active Substance: CYCLOPHOSPHAMIDE
     Indication: Castleman^s disease
     Dosage: UNK,CHOP CHEMOTHERAPY
     Route: 065
  4. VINCRISTINE [Suspect]
     Active Substance: VINCRISTINE
     Indication: Castleman^s disease
     Dosage: UNK, CHOP CHEMOTHERAPY
     Route: 065

REACTIONS (4)
  - Haemoptysis [Fatal]
  - Anaemia [Fatal]
  - Drug ineffective [Fatal]
  - Off label use [Unknown]
